FAERS Safety Report 6957569-2 (Version None)
Quarter: 2010Q3

REPORT INFORMATION
  Report Type: 
  Country: None (occurrence: None)
  Receive Date: 20100831
  Receipt Date: 20100825
  Transmission Date: 20110219
  Serious: Yes (Hospitalization, Other)
  Sender: FDA-Public Use
  Company Number: PHHY2010FR56879

PATIENT
  Sex: Male

DRUGS (2)
  1. STALEVO 100 [Suspect]
     Indication: PARKINSONISM
     Dosage: 700 MG, QD
  2. MADOPAR [Suspect]
     Indication: PARKINSONISM
     Dosage: 700 MG, QD

REACTIONS (3)
  - COMPULSIVE SEXUAL BEHAVIOUR [None]
  - IMPULSE-CONTROL DISORDER [None]
  - PARAPHILIA [None]
